FAERS Safety Report 22235977 (Version 1)
Quarter: 2023Q2

REPORT INFORMATION
  Report Type: Report from Study
  Country: US (occurrence: US)
  Receive Date: 20230420
  Receipt Date: 20230420
  Transmission Date: 20230722
  Serious: No
  Sender: FDA-Public Use
  Company Number: US-ABBVIE-4715410

PATIENT

DRUGS (2)
  1. IMBRUVICA [Suspect]
     Active Substance: IBRUTINIB
     Indication: Chronic lymphocytic leukaemia
     Dosage: DOSE REDUCTION
     Route: 048
  2. IMBRUVICA [Suspect]
     Active Substance: IBRUTINIB
     Indication: Chronic lymphocytic leukaemia
     Route: 048

REACTIONS (10)
  - Cardiac disorder [Unknown]
  - Contusion [Unknown]
  - Hypertension [Unknown]
  - Weight decreased [Unknown]
  - Haemorrhage [Unknown]
  - Atrial fibrillation [Unknown]
  - Arrhythmia [Unknown]
  - Cytopenia [Unknown]
  - Rash [Unknown]
  - Thrombocytopenia [Unknown]
